FAERS Safety Report 8053455-8 (Version None)
Quarter: 2012Q1

REPORT INFORMATION
  Report Type: 
  Country: None (occurrence: None)
  Receive Date: 20120118
  Receipt Date: 20120109
  Transmission Date: 20120608
  Serious: Yes (Other)
  Sender: FDA-Public Use
  Company Number: FR-GLAXOSMITHKLINE-B0774240A

PATIENT
  Sex: Male

DRUGS (8)
  1. INTELENCE [Suspect]
     Indication: HIV INFECTION
     Dosage: 200MG PER DAY
     Route: 048
     Dates: start: 20110201
  2. MALARONE [Suspect]
     Indication: MALARIA PROPHYLAXIS
     Dosage: 1TAB PER DAY
     Route: 048
     Dates: start: 20110201, end: 20110301
  3. PREVISCAN [Suspect]
     Indication: THROMBOSIS PROPHYLAXIS
     Dosage: 2TAB PER DAY
     Route: 048
     Dates: start: 20080301
  4. ISENTRESS [Concomitant]
     Indication: HIV INFECTION
  5. ZIAGEN [Concomitant]
     Indication: HIV INFECTION
  6. VIRAMUNE [Concomitant]
     Indication: HIV INFECTION
     Dates: end: 20110201
  7. MIANSERINE [Concomitant]
     Indication: PRODUCT USED FOR UNKNOWN INDICATION
  8. LEXOMIL [Concomitant]
     Indication: PRODUCT USED FOR UNKNOWN INDICATION

REACTIONS (2)
  - DRUG INTERACTION [None]
  - MUSCLE HAEMORRHAGE [None]
